FAERS Safety Report 8295738-2 (Version None)
Quarter: 2012Q2

REPORT INFORMATION
  Report Type: 
  Country: None (occurrence: None)
  Receive Date: 20120418
  Receipt Date: 20120412
  Transmission Date: 20120825
  Serious: Yes (Other)
  Sender: FDA-Public Use
  Company Number: US-PFIZER INC-2012092471

PATIENT
  Sex: Male
  Weight: 90.703 kg

DRUGS (4)
  1. LYRICA [Suspect]
     Indication: SCIATICA
  2. LYRICA [Suspect]
     Indication: NEURALGIA
     Dosage: 150 MG, 3X/DAY
     Route: 048
     Dates: end: 20120401
  3. LYRICA [Suspect]
     Indication: MUSCULOSKELETAL PAIN
     Dosage: UNK
     Dates: start: 20120401, end: 20120401
  4. LYRICA [Suspect]
     Indication: BACK PAIN

REACTIONS (13)
  - HOT FLUSH [None]
  - SCIATICA [None]
  - ORAL HERPES [None]
  - CIRCUMSTANCE OR INFORMATION CAPABLE OF LEADING TO MEDICATION ERROR [None]
  - NAUSEA [None]
  - HYPERHIDROSIS [None]
  - RHINORRHOEA [None]
  - INFLUENZA LIKE ILLNESS [None]
  - WITHDRAWAL SYNDROME [None]
  - FATIGUE [None]
  - DIARRHOEA [None]
  - PAIN [None]
  - ABDOMINAL PAIN UPPER [None]
